FAERS Safety Report 7049286-8 (Version None)
Quarter: 2010Q4

REPORT INFORMATION
  Report Type: 
  Country: None (occurrence: None)
  Receive Date: 20101018
  Receipt Date: 20101013
  Transmission Date: 20110411
  Serious: Yes (Hospitalization)
  Sender: FDA-Public Use
  Company Number: DE-ROCHE-725697

PATIENT
  Sex: Female
  Weight: 47 kg

DRUGS (7)
  1. PEGINTERFERON ALFA-2A [Suspect]
     Route: 058
     Dates: start: 20100126
  2. PEGINTERFERON ALFA-2A [Suspect]
     Dosage: LAST DOSE PRIOR TO SAE 31 AUGUST 2010.
     Route: 058
  3. PLACEBO [Suspect]
     Dosage: DOSE BLINDED.LAST DOSE PRIOR TO SAE 20 APRIL 2010
     Route: 048
     Dates: start: 20100126
  4. RIBAVIRIN [Suspect]
     Dosage: LAST DOSE PRIOR TO SAE: 02 SEPTEMBER 2010
     Route: 048
     Dates: start: 20100126
  5. OXYGESIC [Concomitant]
  6. OMEPRAZOLE [Concomitant]
  7. NULYTELY [Concomitant]

REACTIONS (2)
  - COUGH [None]
  - LYMPHADENITIS [None]
